FAERS Safety Report 10019711 (Version 2)
Quarter: 2014Q2

REPORT INFORMATION
  Report Type: Spontaneous
  Country: US (occurrence: US)
  Receive Date: 20140318
  Receipt Date: 20140618
  Transmission Date: 20141212
  Serious: No
  Sender: FDA-Public Use
  Company Number: US-GALDERMA-US14000557

PATIENT
  Age: 12 Year
  Sex: Female

DRUGS (5)
  1. MIRVASO (BRIMONIDINE) TOPICAL GEL, 0.33% [Suspect]
     Indication: ROSACEA
     Dosage: 0.33%
     Route: 061
     Dates: start: 20131221, end: 20131222
  2. CETAPHIL FACE WASH [Concomitant]
     Route: 061
     Dates: start: 2012
  3. TAZORAC [Concomitant]
     Dosage: 0.1%
     Route: 061
     Dates: start: 201309
  4. ACANYA [Concomitant]
     Dosage: 1.2%/2/5%
     Route: 061
     Dates: start: 201309
  5. ORACEA (DOXYCYCLINE, USP) CAPSULES 40 MG [Concomitant]
     Dosage: 40 MG
     Route: 048
     Dates: start: 201309

REACTIONS (2)
  - Pallor [Recovered/Resolved]
  - Off label use [Recovered/Resolved]
